FAERS Safety Report 12542013 (Version 2)
Quarter: 2016Q4

REPORT INFORMATION
  Report Type: Spontaneous
  Country: IT (occurrence: IT)
  Receive Date: 20160708
  Receipt Date: 20161005
  Transmission Date: 20170207
  Serious: Yes (Other)
  Sender: FDA-Public Use
  Company Number: PHHY2016IT090778

PATIENT
  Age: 48 Year
  Sex: Female
  Weight: 38 kg

DRUGS (1)
  1. OMNITROPE [Suspect]
     Active Substance: SOMATROPIN
     Indication: PRODUCT USED FOR UNKNOWN INDICATION
     Route: 058
     Dates: start: 20160228, end: 20160502

REACTIONS (7)
  - Visual impairment [Unknown]
  - Anxiety [Unknown]
  - Nausea [Unknown]
  - Headache [Unknown]
  - Bone pain [Unknown]
  - Vertigo [Unknown]
  - Myalgia [Unknown]

NARRATIVE: CASE EVENT DATE: 20160325
